FAERS Safety Report 7297594-8 (Version None)
Quarter: 2011Q1

REPORT INFORMATION
  Report Type: 
  Country: None (occurrence: None)
  Receive Date: 20110216
  Receipt Date: 20110104
  Transmission Date: 20110831
  Serious: Yes (Hospitalization, Other)
  Sender: FDA-Public Use
  Company Number: US-BAXTER-2010BH005743

PATIENT
  Age: 39 Year
  Sex: Female
  Weight: 65 kg

DRUGS (326)
  1. HEPARIN SODIUM INJECTION [Suspect]
     Indication: THROMBECTOMY
     Route: 042
     Dates: start: 20080229, end: 20080229
  2. HEPARIN SODIUM INJECTION [Suspect]
     Indication: ARTERIOVENOUS FISTULA OPERATION
     Route: 042
     Dates: start: 20080229, end: 20080229
  3. HEPARIN SODIUM INJECTION [Suspect]
     Route: 058
     Dates: start: 20080303, end: 20080303
  4. HEPARIN SODIUM INJECTION [Suspect]
     Route: 058
     Dates: start: 20080303, end: 20080303
  5. HEPARIN SODIUM INJECTION [Suspect]
     Route: 065
     Dates: start: 20080304, end: 20080304
  6. HEPARIN SODIUM INJECTION [Suspect]
     Route: 042
     Dates: start: 20080313, end: 20080318
  7. HEPARIN SODIUM INJECTION [Suspect]
     Route: 042
     Dates: start: 20080313, end: 20080318
  8. HEPARIN SODIUM INJECTION [Suspect]
     Route: 042
     Dates: start: 20080229, end: 20080229
  9. HEPARIN SODIUM INJECTION [Suspect]
     Route: 042
     Dates: start: 20080229, end: 20080229
  10. HEPARIN SODIUM INJECTION [Suspect]
     Route: 042
     Dates: start: 20080229, end: 20080229
  11. HEPARIN SODIUM INJECTION [Suspect]
     Route: 042
     Dates: start: 20071213, end: 20071213
  12. HEPARIN SODIUM INJECTION [Suspect]
     Route: 042
     Dates: start: 20071213, end: 20071213
  13. HEPARIN SODIUM INJECTION [Suspect]
     Route: 042
     Dates: start: 20071213, end: 20071213
  14. HEPARIN SODIUM INJECTION [Suspect]
     Route: 058
     Dates: start: 20080303, end: 20080303
  15. HEPARIN SODIUM INJECTION [Suspect]
     Route: 042
     Dates: start: 20080410, end: 20080419
  16. HEPARIN SODIUM INJECTION [Suspect]
     Route: 042
     Dates: start: 20080304, end: 20080304
  17. HEPARIN SODIUM INJECTION [Suspect]
     Route: 010
     Dates: start: 20080105, end: 20080105
  18. HEPARIN SODIUM INJECTION [Suspect]
     Route: 042
     Dates: start: 20080307, end: 20080307
  19. HEPARIN SODIUM INJECTION [Suspect]
     Route: 010
     Dates: start: 20080223, end: 20080223
  20. HEPARIN SODIUM INJECTION [Suspect]
     Route: 042
     Dates: start: 20080313, end: 20080313
  21. HEPARIN SODIUM INJECTION [Suspect]
     Route: 010
     Dates: start: 20071220, end: 20071220
  22. HEPARIN SODIUM INJECTION [Suspect]
     Route: 010
     Dates: start: 20071224, end: 20071224
  23. HEPARIN SODIUM INJECTION [Suspect]
     Route: 010
     Dates: start: 20071224, end: 20071224
  24. HEPARIN SODIUM INJECTION [Suspect]
     Route: 010
     Dates: start: 20071224, end: 20071224
  25. HEPARIN SODIUM INJECTION [Suspect]
     Route: 010
     Dates: start: 20071227, end: 20071227
  26. HEPARIN SODIUM INJECTION [Suspect]
     Route: 010
     Dates: start: 20071227, end: 20071227
  27. HEPARIN SODIUM INJECTION [Suspect]
     Route: 042
     Dates: start: 20080307, end: 20080307
  28. HEPARIN SODIUM INJECTION [Suspect]
     Route: 010
     Dates: start: 20080105, end: 20080105
  29. HEPARIN SODIUM INJECTION [Suspect]
     Route: 042
     Dates: start: 20080309, end: 20080309
  30. HEPARIN SODIUM INJECTION [Suspect]
     Route: 010
     Dates: start: 20080219, end: 20080219
  31. HEPARIN SODIUM INJECTION [Suspect]
     Route: 065
     Dates: start: 20080310, end: 20080310
  32. HEPARIN SODIUM INJECTION [Suspect]
     Route: 010
     Dates: start: 20080223, end: 20080223
  33. HEPARIN SODIUM INJECTION [Suspect]
     Route: 010
     Dates: start: 20080223, end: 20080223
  34. HEPARIN SODIUM INJECTION [Suspect]
     Route: 042
     Dates: start: 20080315, end: 20080315
  35. HEPARIN SODIUM INJECTION [Suspect]
     Route: 010
     Dates: start: 20071218, end: 20071218
  36. HEPARIN SODIUM INJECTION [Suspect]
     Route: 010
     Dates: start: 20071218, end: 20071218
  37. HEPARIN SODIUM INJECTION [Suspect]
     Route: 010
     Dates: start: 20071231, end: 20071231
  38. HEPARIN SODIUM INJECTION [Suspect]
     Route: 042
     Dates: start: 20080410, end: 20080410
  39. HEPARIN SODIUM INJECTION [Suspect]
     Route: 042
     Dates: start: 20080410, end: 20080410
  40. HEPARIN SODIUM INJECTION [Suspect]
     Route: 042
     Dates: start: 20080410, end: 20080410
  41. HEPARIN SODIUM INJECTION [Suspect]
     Route: 010
     Dates: start: 20080429, end: 20080429
  42. HEPARIN SODIUM INJECTION [Suspect]
     Route: 042
     Dates: start: 20080415, end: 20080415
  43. HEPARIN SODIUM INJECTION [Suspect]
     Route: 042
     Dates: start: 20080419, end: 20080419
  44. EPOGEN [Concomitant]
     Indication: PRODUCT USED FOR UNKNOWN INDICATION
     Route: 065
  45. NORCO [Concomitant]
     Indication: PRODUCT USED FOR UNKNOWN INDICATION
     Route: 048
  46. ESZOPICLONE [Concomitant]
     Indication: PRODUCT USED FOR UNKNOWN INDICATION
     Route: 065
  47. HEPARIN SODIUM INJECTION [Suspect]
     Route: 010
     Dates: start: 20071213, end: 20071213
  48. HEPARIN SODIUM INJECTION [Suspect]
     Route: 010
     Dates: start: 20071220, end: 20071220
  49. HEPARIN SODIUM INJECTION [Suspect]
     Route: 058
     Dates: start: 20080303, end: 20080303
  50. HEPARIN SODIUM INJECTION [Suspect]
     Route: 042
     Dates: start: 20080303, end: 20080318
  51. HEPARIN SODIUM INJECTION [Suspect]
     Route: 042
     Dates: start: 20080410, end: 20080419
  52. HEPARIN SODIUM INJECTION [Suspect]
     Route: 010
     Dates: start: 20071227, end: 20071227
  53. HEPARIN SODIUM INJECTION [Suspect]
     Route: 010
     Dates: start: 20071227, end: 20071227
  54. HEPARIN SODIUM INJECTION [Suspect]
     Route: 010
     Dates: start: 20071227, end: 20071227
  55. HEPARIN SODIUM INJECTION [Suspect]
     Route: 010
     Dates: start: 20080105, end: 20080105
  56. HEPARIN SODIUM INJECTION [Suspect]
     Route: 010
     Dates: start: 20080202, end: 20080202
  57. HEPARIN SODIUM INJECTION [Suspect]
     Route: 058
     Dates: start: 20080304, end: 20080304
  58. HEPARIN SODIUM INJECTION [Suspect]
     Route: 042
     Dates: start: 20080312, end: 20080312
  59. HEPARIN SODIUM INJECTION [Suspect]
     Route: 058
     Dates: start: 20080304, end: 20080304
  60. HEPARIN SODIUM INJECTION [Suspect]
     Route: 042
     Dates: start: 20080409, end: 20080419
  61. HEPARIN SODIUM INJECTION [Suspect]
     Route: 010
     Dates: start: 20080223, end: 20080223
  62. HEPARIN SODIUM INJECTION [Suspect]
     Route: 058
     Dates: start: 20080304, end: 20080304
  63. HEPARIN SODIUM INJECTION [Suspect]
     Route: 010
     Dates: start: 20071213, end: 20071213
  64. HEPARIN SODIUM INJECTION [Suspect]
     Route: 042
     Dates: start: 20080305, end: 20080305
  65. HEPARIN SODIUM INJECTION [Suspect]
     Route: 042
     Dates: start: 20080305, end: 20080305
  66. HEPARIN SODIUM INJECTION [Suspect]
     Route: 042
     Dates: start: 20080309, end: 20080309
  67. HEPARIN SODIUM INJECTION [Suspect]
     Route: 042
     Dates: start: 20080309, end: 20080309
  68. HEPARIN SODIUM INJECTION [Suspect]
     Route: 042
     Dates: start: 20080309, end: 20080309
  69. HEPARIN SODIUM INJECTION [Suspect]
     Route: 042
     Dates: start: 20080309, end: 20080309
  70. HEPARIN SODIUM INJECTION [Suspect]
     Route: 010
     Dates: start: 20080219, end: 20080219
  71. HEPARIN SODIUM INJECTION [Suspect]
     Route: 010
     Dates: start: 20080219, end: 20080219
  72. HEPARIN SODIUM INJECTION [Suspect]
     Route: 042
     Dates: start: 20080318, end: 20080318
  73. HEPARIN SODIUM INJECTION [Suspect]
     Route: 042
     Dates: start: 20080318, end: 20080318
  74. HEPARIN SODIUM INJECTION [Suspect]
     Route: 010
     Dates: start: 20071231, end: 20071231
  75. HEPARIN SODIUM INJECTION [Suspect]
     Route: 010
     Dates: start: 20080429, end: 20080429
  76. HEPARIN SODIUM INJECTION [Suspect]
     Route: 010
     Dates: start: 20080429, end: 20080429
  77. HEPARIN SODIUM INJECTION [Suspect]
     Route: 042
     Dates: start: 20080412, end: 20080412
  78. HEPARIN SODIUM INJECTION [Suspect]
     Route: 042
     Dates: start: 20080417, end: 20080417
  79. HEPARIN SODIUM INJECTION [Suspect]
     Route: 042
     Dates: start: 20080417, end: 20080417
  80. LISINOPRIL [Concomitant]
     Indication: PRODUCT USED FOR UNKNOWN INDICATION
     Route: 065
  81. HEPARIN SODIUM INJECTION [Suspect]
     Route: 058
     Dates: start: 20080303, end: 20080303
  82. HEPARIN SODIUM INJECTION [Suspect]
     Route: 042
     Dates: start: 20071213, end: 20071213
  83. HEPARIN SODIUM INJECTION [Suspect]
     Route: 042
     Dates: start: 20071213, end: 20071213
  84. HEPARIN SODIUM INJECTION [Suspect]
     Route: 042
     Dates: start: 20080229, end: 20080229
  85. HEPARIN SODIUM INJECTION [Suspect]
     Route: 065
     Dates: start: 20080311, end: 20080311
  86. HEPARIN SODIUM INJECTION [Suspect]
     Route: 065
     Dates: start: 20080311, end: 20080311
  87. HEPARIN SODIUM INJECTION [Suspect]
     Route: 042
     Dates: start: 20080229, end: 20080229
  88. HEPARIN SODIUM INJECTION [Suspect]
     Route: 042
     Dates: start: 20071213, end: 20071213
  89. HEPARIN SODIUM INJECTION [Suspect]
     Route: 010
     Dates: start: 20071224, end: 20071224
  90. HEPARIN SODIUM INJECTION [Suspect]
     Route: 010
     Dates: start: 20071224, end: 20071224
  91. HEPARIN SODIUM INJECTION [Suspect]
     Route: 042
     Dates: start: 20080304, end: 20080304
  92. HEPARIN SODIUM INJECTION [Suspect]
     Route: 042
     Dates: start: 20080306, end: 20080306
  93. HEPARIN SODIUM INJECTION [Suspect]
     Route: 010
     Dates: start: 20080105, end: 20080105
  94. HEPARIN SODIUM INJECTION [Suspect]
     Route: 058
     Dates: start: 20080304, end: 20080304
  95. HEPARIN SODIUM INJECTION [Suspect]
     Route: 058
     Dates: start: 20080304, end: 20080304
  96. HEPARIN SODIUM INJECTION [Suspect]
     Route: 010
     Dates: start: 20080223, end: 20080223
  97. HEPARIN SODIUM INJECTION [Suspect]
     Route: 042
     Dates: start: 20080229, end: 20080229
  98. HEPARIN SODIUM INJECTION [Suspect]
     Route: 010
     Dates: start: 20071213, end: 20071213
  99. HEPARIN SODIUM INJECTION [Suspect]
     Route: 058
     Dates: start: 20080305, end: 20080305
  100. HEPARIN SODIUM INJECTION [Suspect]
     Route: 042
     Dates: start: 20080313, end: 20080313
  101. HEPARIN SODIUM INJECTION [Suspect]
     Route: 042
     Dates: start: 20080305, end: 20080305
  102. HEPARIN SODIUM INJECTION [Suspect]
     Route: 042
     Dates: start: 20080305, end: 20080305
  103. HEPARIN SODIUM INJECTION [Suspect]
     Route: 010
     Dates: start: 20071227, end: 20071227
  104. HEPARIN SODIUM INJECTION [Suspect]
     Route: 010
     Dates: start: 20080105, end: 20080105
  105. HEPARIN SODIUM INJECTION [Suspect]
     Route: 010
     Dates: start: 20080202, end: 20080202
  106. HEPARIN SODIUM INJECTION [Suspect]
     Route: 042
     Dates: start: 20080309, end: 20080309
  107. HEPARIN SODIUM INJECTION [Suspect]
     Route: 042
     Dates: start: 20080315, end: 20080315
  108. HEPARIN SODIUM INJECTION [Suspect]
     Route: 010
     Dates: start: 20071218, end: 20071218
  109. HEPARIN SODIUM INJECTION [Suspect]
     Route: 010
     Dates: start: 20071218, end: 20071218
  110. HEPARIN SODIUM INJECTION [Suspect]
     Route: 042
     Dates: start: 20080318, end: 20080318
  111. HEPARIN SODIUM INJECTION [Suspect]
     Route: 042
     Dates: start: 20080318, end: 20080318
  112. HEPARIN SODIUM INJECTION [Suspect]
     Route: 010
     Dates: start: 20080429, end: 20080429
  113. HEPARIN SODIUM INJECTION [Suspect]
     Route: 042
     Dates: start: 20080410, end: 20080410
  114. HEPARIN SODIUM INJECTION [Suspect]
     Route: 042
     Dates: start: 20080412, end: 20080412
  115. HEPARIN SODIUM INJECTION [Suspect]
     Route: 042
     Dates: start: 20080412, end: 20080412
  116. HEPARIN SODIUM INJECTION [Suspect]
     Route: 042
     Dates: start: 20080415, end: 20080415
  117. HEPARIN SODIUM INJECTION [Suspect]
     Route: 042
     Dates: start: 20080415, end: 20080415
  118. HEPARIN SODIUM INJECTION [Suspect]
     Route: 042
     Dates: start: 20080417, end: 20080417
  119. HYDRALAZINE [Concomitant]
     Indication: PRODUCT USED FOR UNKNOWN INDICATION
     Route: 065
  120. HEPARIN SODIUM INJECTION [Suspect]
     Route: 065
     Dates: start: 20080304, end: 20080304
  121. HEPARIN SODIUM INJECTION [Suspect]
     Route: 010
     Dates: start: 20071213, end: 20071213
  122. HEPARIN SODIUM INJECTION [Suspect]
     Route: 065
     Dates: start: 20080311, end: 20080311
  123. HEPARIN SODIUM INJECTION [Suspect]
     Route: 042
     Dates: start: 20080304, end: 20080311
  124. HEPARIN SODIUM INJECTION [Suspect]
     Route: 042
     Dates: start: 20080304, end: 20080311
  125. HEPARIN SODIUM INJECTION [Suspect]
     Route: 010
     Dates: start: 20071224, end: 20071224
  126. HEPARIN SODIUM INJECTION [Suspect]
     Route: 058
     Dates: start: 20080303, end: 20080303
  127. HEPARIN SODIUM INJECTION [Suspect]
     Route: 058
     Dates: start: 20080303, end: 20080305
  128. HEPARIN SODIUM INJECTION [Suspect]
     Route: 058
     Dates: start: 20080303, end: 20080305
  129. HEPARIN SODIUM INJECTION [Suspect]
     Route: 010
     Dates: start: 20071227, end: 20071227
  130. HEPARIN SODIUM INJECTION [Suspect]
     Route: 042
     Dates: start: 20080307, end: 20080307
  131. HEPARIN SODIUM INJECTION [Suspect]
     Route: 058
     Dates: start: 20080304, end: 20080304
  132. HEPARIN SODIUM INJECTION [Suspect]
     Route: 042
     Dates: start: 20080312, end: 20080312
  133. HEPARIN SODIUM INJECTION [Suspect]
     Route: 010
     Dates: start: 20080219, end: 20080219
  134. HEPARIN SODIUM INJECTION [Suspect]
     Route: 010
     Dates: start: 20080219, end: 20080219
  135. HEPARIN SODIUM INJECTION [Suspect]
     Route: 058
     Dates: start: 20080304, end: 20080304
  136. HEPARIN SODIUM INJECTION [Suspect]
     Route: 042
     Dates: start: 20080229, end: 20080229
  137. HEPARIN SODIUM INJECTION [Suspect]
     Route: 042
     Dates: start: 20080229, end: 20080229
  138. HEPARIN SODIUM INJECTION [Suspect]
     Route: 042
     Dates: start: 20080229, end: 20080229
  139. HEPARIN SODIUM INJECTION [Suspect]
     Route: 010
     Dates: start: 20071213, end: 20071213
  140. HEPARIN SODIUM INJECTION [Suspect]
     Route: 058
     Dates: start: 20080305, end: 20080305
  141. HEPARIN SODIUM INJECTION [Suspect]
     Route: 042
     Dates: start: 20080313, end: 20080313
  142. HEPARIN SODIUM INJECTION [Suspect]
     Route: 042
     Dates: start: 20080313, end: 20080313
  143. HEPARIN SODIUM INJECTION [Suspect]
     Route: 010
     Dates: start: 20071220, end: 20071220
  144. HEPARIN SODIUM INJECTION [Suspect]
     Route: 010
     Dates: start: 20071224, end: 20071224
  145. HEPARIN SODIUM INJECTION [Suspect]
     Route: 042
     Dates: start: 20080307, end: 20080307
  146. HEPARIN SODIUM INJECTION [Suspect]
     Route: 042
     Dates: start: 20080307, end: 20080307
  147. HEPARIN SODIUM INJECTION [Suspect]
     Route: 010
     Dates: start: 20080105, end: 20080105
  148. HEPARIN SODIUM INJECTION [Suspect]
     Route: 010
     Dates: start: 20080219, end: 20080219
  149. HEPARIN SODIUM INJECTION [Suspect]
     Route: 042
     Dates: start: 20080315, end: 20080315
  150. HEPARIN SODIUM INJECTION [Suspect]
     Route: 010
     Dates: start: 20080429, end: 20080429
  151. HEPARIN SODIUM INJECTION [Suspect]
     Route: 010
     Dates: start: 20080429, end: 20080429
  152. HEPARIN SODIUM INJECTION [Suspect]
     Route: 042
     Dates: start: 20080410, end: 20080410
  153. HEPARIN SODIUM INJECTION [Suspect]
     Route: 042
     Dates: start: 20080412, end: 20080412
  154. HEPARIN SODIUM INJECTION [Suspect]
     Route: 042
     Dates: start: 20080419, end: 20080419
  155. HEPARIN SODIUM INJECTION [Suspect]
     Route: 042
     Dates: start: 20080419, end: 20080419
  156. METOPROLOL [Concomitant]
     Indication: PRODUCT USED FOR UNKNOWN INDICATION
     Route: 065
  157. MIRTAZAPINE [Concomitant]
     Indication: PRODUCT USED FOR UNKNOWN INDICATION
     Route: 065
  158. NIFEDIPINE [Concomitant]
     Indication: PRODUCT USED FOR UNKNOWN INDICATION
     Route: 065
  159. ACTIVASE ^ROCHE^ [Concomitant]
     Indication: PRODUCT USED FOR UNKNOWN INDICATION
     Route: 065
  160. CEFAZOLIN [Concomitant]
     Indication: PRODUCT USED FOR UNKNOWN INDICATION
     Route: 065
  161. HEPARIN SODIUM INJECTION [Suspect]
     Route: 058
     Dates: start: 20080303, end: 20080303
  162. HEPARIN SODIUM INJECTION [Suspect]
     Route: 065
     Dates: start: 20080304, end: 20080304
  163. HEPARIN SODIUM INJECTION [Suspect]
     Route: 042
     Dates: start: 20071213, end: 20071213
  164. HEPARIN SODIUM INJECTION [Suspect]
     Route: 042
     Dates: start: 20080313, end: 20080318
  165. HEPARIN SODIUM INJECTION [Suspect]
     Route: 042
     Dates: start: 20080229, end: 20080229
  166. HEPARIN SODIUM INJECTION [Suspect]
     Route: 065
     Dates: start: 20080311, end: 20080311
  167. HEPARIN SODIUM INJECTION [Suspect]
     Route: 042
     Dates: start: 20080304, end: 20080311
  168. HEPARIN SODIUM INJECTION [Suspect]
     Route: 010
     Dates: start: 20071220, end: 20071220
  169. HEPARIN SODIUM INJECTION [Suspect]
     Route: 010
     Dates: start: 20071220, end: 20071220
  170. HEPARIN SODIUM INJECTION [Suspect]
     Route: 010
     Dates: start: 20071220, end: 20071220
  171. HEPARIN SODIUM INJECTION [Suspect]
     Route: 010
     Dates: start: 20071224, end: 20071224
  172. HEPARIN SODIUM INJECTION [Suspect]
     Route: 042
     Dates: start: 20080410, end: 20080419
  173. HEPARIN SODIUM INJECTION [Suspect]
     Route: 042
     Dates: start: 20080410, end: 20080419
  174. HEPARIN SODIUM INJECTION [Suspect]
     Route: 042
     Dates: start: 20080410, end: 20080419
  175. HEPARIN SODIUM INJECTION [Suspect]
     Route: 042
     Dates: start: 20080304, end: 20080304
  176. HEPARIN SODIUM INJECTION [Suspect]
     Route: 042
     Dates: start: 20080304, end: 20080304
  177. HEPARIN SODIUM INJECTION [Suspect]
     Route: 042
     Dates: start: 20080306, end: 20080306
  178. HEPARIN SODIUM INJECTION [Suspect]
     Route: 042
     Dates: start: 20080306, end: 20080306
  179. HEPARIN SODIUM INJECTION [Suspect]
     Route: 010
     Dates: start: 20080105, end: 20080105
  180. HEPARIN SODIUM INJECTION [Suspect]
     Route: 058
     Dates: start: 20080304, end: 20080304
  181. HEPARIN SODIUM INJECTION [Suspect]
     Route: 058
     Dates: start: 20080304, end: 20080304
  182. HEPARIN SODIUM INJECTION [Suspect]
     Route: 058
     Dates: start: 20080304, end: 20080304
  183. HEPARIN SODIUM INJECTION [Suspect]
     Route: 058
     Dates: start: 20080304, end: 20080304
  184. HEPARIN SODIUM INJECTION [Suspect]
     Route: 042
     Dates: start: 20080312, end: 20080312
  185. HEPARIN SODIUM INJECTION [Suspect]
     Route: 010
     Dates: start: 20080219, end: 20080219
  186. HEPARIN SODIUM INJECTION [Suspect]
     Route: 010
     Dates: start: 20080219, end: 20080219
  187. HEPARIN SODIUM INJECTION [Suspect]
     Route: 010
     Dates: start: 20080219, end: 20080219
  188. HEPARIN SODIUM INJECTION [Suspect]
     Route: 058
     Dates: start: 20080304, end: 20080304
  189. HEPARIN SODIUM INJECTION [Suspect]
     Route: 010
     Dates: start: 20080223, end: 20080223
  190. HEPARIN SODIUM INJECTION [Suspect]
     Route: 058
     Dates: start: 20080305, end: 20080305
  191. HEPARIN SODIUM INJECTION [Suspect]
     Route: 010
     Dates: start: 20071220, end: 20071220
  192. HEPARIN SODIUM INJECTION [Suspect]
     Route: 010
     Dates: start: 20071220, end: 20071220
  193. HEPARIN SODIUM INJECTION [Suspect]
     Route: 042
     Dates: start: 20080305, end: 20080305
  194. HEPARIN SODIUM INJECTION [Suspect]
     Route: 010
     Dates: start: 20071224, end: 20071224
  195. HEPARIN SODIUM INJECTION [Suspect]
     Route: 010
     Dates: start: 20080202, end: 20080202
  196. HEPARIN SODIUM INJECTION [Suspect]
     Route: 042
     Dates: start: 20080309, end: 20080309
  197. HEPARIN SODIUM INJECTION [Suspect]
     Route: 042
     Dates: start: 20080315, end: 20080315
  198. HEPARIN SODIUM INJECTION [Suspect]
     Route: 042
     Dates: start: 20080315, end: 20080315
  199. HEPARIN SODIUM INJECTION [Suspect]
     Route: 010
     Dates: start: 20071218, end: 20071218
  200. HEPARIN SODIUM INJECTION [Suspect]
     Route: 042
     Dates: start: 20080318, end: 20080318
  201. HEPARIN SODIUM INJECTION [Suspect]
     Route: 042
     Dates: start: 20080318, end: 20080318
  202. HEPARIN SODIUM INJECTION [Suspect]
     Route: 010
     Dates: start: 20080429, end: 20080429
  203. HEPARIN SODIUM INJECTION [Suspect]
     Route: 042
     Dates: start: 20080410, end: 20080410
  204. ASPIRIN [Concomitant]
     Indication: PRODUCT USED FOR UNKNOWN INDICATION
     Route: 065
  205. SIMVASTATIN [Concomitant]
     Indication: PRODUCT USED FOR UNKNOWN INDICATION
     Route: 065
  206. PAPAVERINE [Concomitant]
     Indication: PRODUCT USED FOR UNKNOWN INDICATION
     Route: 065
  207. HEPARIN SODIUM INJECTION [Suspect]
     Indication: HAEMODIALYSIS
     Route: 042
     Dates: start: 20080229, end: 20080229
  208. HEPARIN SODIUM INJECTION [Suspect]
     Indication: INTRAVENOUS CATHETER MANAGEMENT
     Route: 042
     Dates: start: 20080229, end: 20080229
  209. HEPARIN SODIUM INJECTION [Suspect]
     Route: 065
     Dates: start: 20080304, end: 20080304
  210. HEPARIN SODIUM INJECTION [Suspect]
     Route: 065
     Dates: start: 20080304, end: 20080304
  211. HEPARIN SODIUM INJECTION [Suspect]
     Route: 042
     Dates: start: 20080229, end: 20080229
  212. HEPARIN SODIUM INJECTION [Suspect]
     Route: 042
     Dates: start: 20071213, end: 20071213
  213. HEPARIN SODIUM INJECTION [Suspect]
     Route: 042
     Dates: start: 20080303, end: 20080318
  214. HEPARIN SODIUM INJECTION [Suspect]
     Route: 042
     Dates: start: 20080303, end: 20080318
  215. HEPARIN SODIUM INJECTION [Suspect]
     Route: 010
     Dates: start: 20071227, end: 20071227
  216. HEPARIN SODIUM INJECTION [Suspect]
     Route: 042
     Dates: start: 20080304, end: 20080304
  217. HEPARIN SODIUM INJECTION [Suspect]
     Route: 042
     Dates: start: 20080306, end: 20080306
  218. HEPARIN SODIUM INJECTION [Suspect]
     Route: 042
     Dates: start: 20080307, end: 20080307
  219. HEPARIN SODIUM INJECTION [Suspect]
     Route: 058
     Dates: start: 20080304, end: 20080304
  220. HEPARIN SODIUM INJECTION [Suspect]
     Route: 042
     Dates: start: 20080312, end: 20080312
  221. HEPARIN SODIUM INJECTION [Suspect]
     Route: 042
     Dates: start: 20080409, end: 20080419
  222. HEPARIN SODIUM INJECTION [Suspect]
     Route: 058
     Dates: start: 20080304, end: 20080304
  223. HEPARIN SODIUM INJECTION [Suspect]
     Route: 010
     Dates: start: 20071213, end: 20071213
  224. HEPARIN SODIUM INJECTION [Suspect]
     Route: 010
     Dates: start: 20071213, end: 20071213
  225. HEPARIN SODIUM INJECTION [Suspect]
     Route: 042
     Dates: start: 20080313, end: 20080313
  226. HEPARIN SODIUM INJECTION [Suspect]
     Route: 010
     Dates: start: 20071220, end: 20071220
  227. HEPARIN SODIUM INJECTION [Suspect]
     Route: 042
     Dates: start: 20080305, end: 20080305
  228. HEPARIN SODIUM INJECTION [Suspect]
     Route: 042
     Dates: start: 20080305, end: 20080305
  229. HEPARIN SODIUM INJECTION [Suspect]
     Route: 042
     Dates: start: 20080305, end: 20080305
  230. HEPARIN SODIUM INJECTION [Suspect]
     Route: 010
     Dates: start: 20071227, end: 20071227
  231. HEPARIN SODIUM INJECTION [Suspect]
     Route: 042
     Dates: start: 20080307, end: 20080307
  232. HEPARIN SODIUM INJECTION [Suspect]
     Route: 010
     Dates: start: 20080202, end: 20080202
  233. HEPARIN SODIUM INJECTION [Suspect]
     Route: 010
     Dates: start: 20080202, end: 20080202
  234. HEPARIN SODIUM INJECTION [Suspect]
     Route: 042
     Dates: start: 20080309, end: 20080309
  235. HEPARIN SODIUM INJECTION [Suspect]
     Route: 010
     Dates: start: 20080219, end: 20080219
  236. HEPARIN SODIUM INJECTION [Suspect]
     Route: 065
     Dates: start: 20080310, end: 20080310
  237. HEPARIN SODIUM INJECTION [Suspect]
     Route: 065
     Dates: start: 20080310, end: 20080310
  238. HEPARIN SODIUM INJECTION [Suspect]
     Route: 010
     Dates: start: 20080223, end: 20080223
  239. HEPARIN SODIUM INJECTION [Suspect]
     Route: 010
     Dates: start: 20080223, end: 20080223
  240. HEPARIN SODIUM INJECTION [Suspect]
     Route: 042
     Dates: start: 20080318, end: 20080318
  241. HEPARIN SODIUM INJECTION [Suspect]
     Route: 042
     Dates: start: 20080318, end: 20080318
  242. HEPARIN SODIUM INJECTION [Suspect]
     Route: 010
     Dates: start: 20071231, end: 20071231
  243. HEPARIN SODIUM INJECTION [Suspect]
     Route: 010
     Dates: start: 20080429, end: 20080429
  244. HEPARIN SODIUM INJECTION [Suspect]
     Route: 010
     Dates: start: 20080429, end: 20080429
  245. HEPARIN SODIUM INJECTION [Suspect]
     Route: 042
     Dates: start: 20080415, end: 20080415
  246. HEPARIN SODIUM INJECTION [Suspect]
     Route: 042
     Dates: start: 20080419, end: 20080419
  247. PLAVIX [Concomitant]
     Indication: PRODUCT USED FOR UNKNOWN INDICATION
     Route: 065
  248. AVELOX [Concomitant]
     Indication: PRODUCT USED FOR UNKNOWN INDICATION
     Route: 065
  249. PEPCID [Concomitant]
     Indication: PRODUCT USED FOR UNKNOWN INDICATION
     Route: 065
  250. LABETALOL [Concomitant]
     Indication: PRODUCT USED FOR UNKNOWN INDICATION
     Route: 065
  251. RENAGEL [Concomitant]
     Indication: PRODUCT USED FOR UNKNOWN INDICATION
     Route: 065
  252. HYDROMORPHONE HCL [Concomitant]
     Indication: PRODUCT USED FOR UNKNOWN INDICATION
     Route: 065
  253. HEPARIN SODIUM INJECTION [Suspect]
     Indication: CATHETER PLACEMENT
     Route: 042
     Dates: start: 20080229, end: 20080229
  254. HEPARIN SODIUM INJECTION [Suspect]
     Route: 058
     Dates: start: 20080303, end: 20080303
  255. HEPARIN SODIUM INJECTION [Suspect]
     Route: 042
     Dates: start: 20071213, end: 20071213
  256. HEPARIN SODIUM INJECTION [Suspect]
     Route: 042
     Dates: start: 20071213, end: 20071213
  257. HEPARIN SODIUM INJECTION [Suspect]
     Route: 042
     Dates: start: 20080313, end: 20080318
  258. HEPARIN SODIUM INJECTION [Suspect]
     Route: 010
     Dates: start: 20071213, end: 20071213
  259. HEPARIN SODIUM INJECTION [Suspect]
     Route: 042
     Dates: start: 20080229, end: 20080229
  260. HEPARIN SODIUM INJECTION [Suspect]
     Route: 065
     Dates: start: 20080311, end: 20080311
  261. HEPARIN SODIUM INJECTION [Suspect]
     Route: 042
     Dates: start: 20080304, end: 20080311
  262. HEPARIN SODIUM INJECTION [Suspect]
     Route: 042
     Dates: start: 20080304, end: 20080311
  263. HEPARIN SODIUM INJECTION [Suspect]
     Route: 042
     Dates: start: 20080229, end: 20080229
  264. HEPARIN SODIUM INJECTION [Suspect]
     Route: 058
     Dates: start: 20080303, end: 20080303
  265. HEPARIN SODIUM INJECTION [Suspect]
     Route: 042
     Dates: start: 20080303, end: 20080318
  266. HEPARIN SODIUM INJECTION [Suspect]
     Route: 042
     Dates: start: 20080303, end: 20080318
  267. HEPARIN SODIUM INJECTION [Suspect]
     Route: 058
     Dates: start: 20080303, end: 20080305
  268. HEPARIN SODIUM INJECTION [Suspect]
     Route: 058
     Dates: start: 20080303, end: 20080305
  269. HEPARIN SODIUM INJECTION [Suspect]
     Route: 042
     Dates: start: 20080306, end: 20080306
  270. HEPARIN SODIUM INJECTION [Suspect]
     Route: 010
     Dates: start: 20080105, end: 20080105
  271. HEPARIN SODIUM INJECTION [Suspect]
     Route: 058
     Dates: start: 20080304, end: 20080304
  272. HEPARIN SODIUM INJECTION [Suspect]
     Route: 010
     Dates: start: 20080202, end: 20080202
  273. HEPARIN SODIUM INJECTION [Suspect]
     Route: 010
     Dates: start: 20080202, end: 20080202
  274. HEPARIN SODIUM INJECTION [Suspect]
     Route: 010
     Dates: start: 20080202, end: 20080202
  275. HEPARIN SODIUM INJECTION [Suspect]
     Route: 010
     Dates: start: 20080202, end: 20080202
  276. HEPARIN SODIUM INJECTION [Suspect]
     Route: 058
     Dates: start: 20080304, end: 20080304
  277. HEPARIN SODIUM INJECTION [Suspect]
     Route: 042
     Dates: start: 20080409, end: 20080419
  278. HEPARIN SODIUM INJECTION [Suspect]
     Route: 042
     Dates: start: 20080409, end: 20080419
  279. HEPARIN SODIUM INJECTION [Suspect]
     Route: 058
     Dates: start: 20080304, end: 20080304
  280. HEPARIN SODIUM INJECTION [Suspect]
     Route: 058
     Dates: start: 20080304, end: 20080304
  281. HEPARIN SODIUM INJECTION [Suspect]
     Route: 058
     Dates: start: 20080304, end: 20080304
  282. HEPARIN SODIUM INJECTION [Suspect]
     Route: 042
     Dates: start: 20080229, end: 20080229
  283. HEPARIN SODIUM INJECTION [Suspect]
     Route: 058
     Dates: start: 20080305, end: 20080305
  284. HEPARIN SODIUM INJECTION [Suspect]
     Route: 010
     Dates: start: 20071227, end: 20071227
  285. HEPARIN SODIUM INJECTION [Suspect]
     Route: 042
     Dates: start: 20080307, end: 20080307
  286. HEPARIN SODIUM INJECTION [Suspect]
     Route: 065
     Dates: start: 20080310, end: 20080310
  287. HEPARIN SODIUM INJECTION [Suspect]
     Route: 010
     Dates: start: 20080223, end: 20080223
  288. HEPARIN SODIUM INJECTION [Suspect]
     Route: 010
     Dates: start: 20071231, end: 20071231
  289. HEPARIN SODIUM INJECTION [Suspect]
     Route: 042
     Dates: start: 20080318, end: 20080318
  290. HEPARIN SODIUM INJECTION [Suspect]
     Route: 010
     Dates: start: 20080429, end: 20080429
  291. HEPARIN SODIUM INJECTION [Suspect]
     Route: 042
     Dates: start: 20080410, end: 20080410
  292. HEPARIN SODIUM INJECTION [Suspect]
     Route: 042
     Dates: start: 20080410, end: 20080410
  293. HEPARIN SODIUM INJECTION [Suspect]
     Route: 042
     Dates: start: 20080410, end: 20080410
  294. HEPARIN SODIUM INJECTION [Suspect]
     Route: 042
     Dates: start: 20080417, end: 20080417
  295. HEPARIN SODIUM INJECTION [Suspect]
     Route: 042
     Dates: start: 20080419, end: 20080419
  296. HEPARIN SODIUM INJECTION [Suspect]
     Route: 042
     Dates: start: 20080313, end: 20080318
  297. HEPARIN SODIUM INJECTION [Suspect]
     Route: 010
     Dates: start: 20071213, end: 20071213
  298. HEPARIN SODIUM INJECTION [Suspect]
     Route: 010
     Dates: start: 20071213, end: 20071213
  299. HEPARIN SODIUM INJECTION [Suspect]
     Route: 010
     Dates: start: 20071220, end: 20071220
  300. HEPARIN SODIUM INJECTION [Suspect]
     Route: 042
     Dates: start: 20080229, end: 20080229
  301. HEPARIN SODIUM INJECTION [Suspect]
     Route: 010
     Dates: start: 20071224, end: 20071224
  302. HEPARIN SODIUM INJECTION [Suspect]
     Route: 058
     Dates: start: 20080303, end: 20080303
  303. HEPARIN SODIUM INJECTION [Suspect]
     Route: 058
     Dates: start: 20080303, end: 20080305
  304. HEPARIN SODIUM INJECTION [Suspect]
     Route: 042
     Dates: start: 20080307, end: 20080307
  305. HEPARIN SODIUM INJECTION [Suspect]
     Route: 042
     Dates: start: 20080307, end: 20080307
  306. HEPARIN SODIUM INJECTION [Suspect]
     Route: 058
     Dates: start: 20080304, end: 20080304
  307. HEPARIN SODIUM INJECTION [Suspect]
     Route: 042
     Dates: start: 20080312, end: 20080312
  308. HEPARIN SODIUM INJECTION [Suspect]
     Route: 042
     Dates: start: 20080409, end: 20080419
  309. HEPARIN SODIUM INJECTION [Suspect]
     Route: 010
     Dates: start: 20080223, end: 20080223
  310. HEPARIN SODIUM INJECTION [Suspect]
     Route: 058
     Dates: start: 20080305, end: 20080305
  311. HEPARIN SODIUM INJECTION [Suspect]
     Route: 042
     Dates: start: 20080305, end: 20080305
  312. HEPARIN SODIUM INJECTION [Suspect]
     Route: 042
     Dates: start: 20080305, end: 20080305
  313. HEPARIN SODIUM INJECTION [Suspect]
     Route: 010
     Dates: start: 20080105, end: 20080105
  314. HEPARIN SODIUM INJECTION [Suspect]
     Route: 010
     Dates: start: 20080105, end: 20080105
  315. HEPARIN SODIUM INJECTION [Suspect]
     Route: 042
     Dates: start: 20080309, end: 20080309
  316. HEPARIN SODIUM INJECTION [Suspect]
     Route: 042
     Dates: start: 20080309, end: 20080309
  317. HEPARIN SODIUM INJECTION [Suspect]
     Route: 010
     Dates: start: 20080202, end: 20080202
  318. HEPARIN SODIUM INJECTION [Suspect]
     Route: 065
     Dates: start: 20080310, end: 20080310
  319. HEPARIN SODIUM INJECTION [Suspect]
     Route: 010
     Dates: start: 20071231, end: 20071231
  320. HEPARIN SODIUM INJECTION [Suspect]
     Route: 042
     Dates: start: 20080318, end: 20080318
  321. HEPARIN SODIUM INJECTION [Suspect]
     Route: 042
     Dates: start: 20080410, end: 20080410
  322. HEPARIN SODIUM INJECTION [Suspect]
     Route: 042
     Dates: start: 20080412, end: 20080412
  323. HEPARIN SODIUM INJECTION [Suspect]
     Route: 042
     Dates: start: 20080415, end: 20080415
  324. HEPARIN SODIUM INJECTION [Suspect]
     Route: 042
     Dates: start: 20080417, end: 20080417
  325. HEPARIN SODIUM 5,000 UNITS IN DEXTROSE 5% [Suspect]
     Indication: PRODUCT USED FOR UNKNOWN INDICATION
     Route: 041
     Dates: start: 20080311, end: 20080311
  326. DESMOPRESSIN ACETATE [Concomitant]
     Indication: PRODUCT USED FOR UNKNOWN INDICATION
     Route: 065

REACTIONS (24)
  - HAEMATOMA [None]
  - DYSPNOEA [None]
  - HYPOAESTHESIA [None]
  - MOTOR DYSFUNCTION [None]
  - PAIN [None]
  - VENOUS STENOSIS [None]
  - ANAEMIA [None]
  - OEDEMA PERIPHERAL [None]
  - HYPERKALAEMIA [None]
  - DIZZINESS [None]
  - HYPOTENSION [None]
  - FEELING HOT [None]
  - AZOTAEMIA [None]
  - VASCULAR GRAFT COMPLICATION [None]
  - WOUND DEHISCENCE [None]
  - NECROSIS [None]
  - SCAR [None]
  - HAEMORRHAGIC DIATHESIS [None]
  - PLATELET DISORDER [None]
  - ANXIETY [None]
  - VASCULAR GRAFT OCCLUSION [None]
  - HEPARIN-INDUCED THROMBOCYTOPENIA [None]
  - VASCULITIS [None]
  - HYPOVOLAEMIA [None]
